FAERS Safety Report 7714906-9 (Version None)
Quarter: 2011Q3

REPORT INFORMATION
  Report Type: 
  Country: None (occurrence: None)
  Receive Date: 20110829
  Receipt Date: 20110822
  Transmission Date: 20111222
  Serious: Yes (Hospitalization)
  Sender: FDA-Public Use
  Company Number: FR-AMGEN-FRASP2011043601

PATIENT
  Age: 34 Year
  Sex: Male

DRUGS (3)
  1. ENBREL [Suspect]
     Dosage: 25 MG, WEEKLY
     Dates: start: 20090901, end: 20100201
  2. ENBREL [Suspect]
     Indication: PRODUCT USED FOR UNKNOWN INDICATION
     Dosage: 50 MG, WEEKLY
     Route: 058
     Dates: start: 20080312, end: 20090911
  3. ENBREL [Suspect]
     Dosage: 50 MG, WEEKLY
     Dates: start: 20100220

REACTIONS (3)
  - PAIN [None]
  - ABDOMINAL PAIN [None]
  - DIARRHOEA [None]
